FAERS Safety Report 21559097 (Version 2)
Quarter: 2025Q1

REPORT INFORMATION
  Report Type: Spontaneous
  Country: RU (occurrence: RU)
  Receive Date: 20221107
  Receipt Date: 20250217
  Transmission Date: 20250409
  Serious: Yes (Hospitalization, Other)
  Sender: ROCHE
  Company Number: RU-ROCHE-3211280

PATIENT
  Age: 76 Year
  Sex: Male

DRUGS (1)
  1. ATEZOLIZUMAB [Suspect]
     Active Substance: ATEZOLIZUMAB
     Indication: Transitional cell carcinoma
     Route: 040

REACTIONS (7)
  - Blood urine present [Unknown]
  - Cholecystitis chronic [Unknown]
  - Pneumatosis intestinalis [Unknown]
  - Hydronephrosis [Unknown]
  - Hydronephrosis [Unknown]
  - Biliary dyskinesia [Unknown]
  - Cholelithiasis [Unknown]
